FAERS Safety Report 8686496 (Version 2)
Quarter: 2013Q1

REPORT INFORMATION
  Report Type: Spontaneous
  Country: US (occurrence: US)
  Receive Date: 20120726
  Receipt Date: 20130125
  Transmission Date: 20140127
  Serious: Yes (Other)
  Sender: FDA-Public Use
  Company Number: US-ASTRAZENECA-2010SE44022

PATIENT
  Age: 48 Year
  Sex: Female
  Weight: 63.5 kg

DRUGS (13)
  1. SEROQUEL XR [Suspect]
     Indication: BIPOLAR DISORDER
     Dosage: 50 MILLIGRAMS TO 300 MILLIGRAMS DAILY
     Route: 048
     Dates: start: 2008
  2. SEROQUEL XR [Suspect]
     Indication: DEPRESSION
     Dosage: 50 MILLIGRAMS TO 300 MILLIGRAMS DAILY
     Route: 048
     Dates: start: 2008
  3. SEROQUEL XR [Suspect]
     Indication: BIPOLAR DISORDER
     Dosage: 100 MG OR 200 MG AT NIGHT
     Route: 048
  4. SEROQUEL XR [Suspect]
     Indication: DEPRESSION
     Dosage: 100 MG OR 200 MG AT NIGHT
     Route: 048
  5. SEROQUEL XR [Suspect]
     Indication: BIPOLAR DISORDER
     Route: 048
     Dates: start: 2009
  6. SEROQUEL XR [Suspect]
     Indication: DEPRESSION
     Route: 048
     Dates: start: 2009
  7. SEROQUEL XR [Suspect]
     Indication: BIPOLAR DISORDER
     Route: 048
  8. SEROQUEL XR [Suspect]
     Indication: DEPRESSION
     Route: 048
  9. SOMA [Concomitant]
  10. LEXAPRO [Concomitant]
  11. METHADONE [Concomitant]
     Indication: PAIN
  12. HYDROCODONE [Concomitant]
     Indication: PAIN
  13. CLONIPINE [Concomitant]
     Indication: ANXIETY

REACTIONS (21)
  - Suicidal ideation [Unknown]
  - Panic disorder [Unknown]
  - Mania [Unknown]
  - Phobia [Unknown]
  - Hyperventilation [Unknown]
  - Weight decreased [Unknown]
  - Antisocial behaviour [Unknown]
  - Insomnia [Unknown]
  - Multiple sclerosis [Unknown]
  - Depression [Unknown]
  - Anxiety [Unknown]
  - Therapeutic response increased [Unknown]
  - Fibromyalgia [Unknown]
  - Malaise [Unknown]
  - Pain [Unknown]
  - Pain [Unknown]
  - Somnolence [Unknown]
  - Fatigue [Unknown]
  - Weight increased [Unknown]
  - Wrong technique in drug usage process [Unknown]
  - Drug dose omission [Unknown]
